FAERS Safety Report 21858795 (Version 8)
Quarter: 2024Q3

REPORT INFORMATION
  Report Type: Report from Study
  Country: US (occurrence: US)
  Receive Date: 20230113
  Receipt Date: 20240725
  Transmission Date: 20241016
  Serious: Yes (Disabling, Other)
  Sender: EMD SERONO INC
  Company Number: US-Merck Healthcare KGaA-9376923

PATIENT
  Age: 58 Year
  Sex: Male

DRUGS (5)
  1. MAVENCLAD [Suspect]
     Active Substance: CLADRIBINE
     Indication: Secondary progressive multiple sclerosis
     Dosage: YEAR ONE MONTH ONE THERAPY: TWO TABLETS ON DAYS 1 TO 3 AND ONE TABLET ON DAYS 4 TO 5
     Route: 048
     Dates: start: 20221202, end: 20221206
  2. MAVENCLAD [Suspect]
     Active Substance: CLADRIBINE
     Dosage: YEAR ONE MONTH TWO THERAPY: TWO TABLETS ON DAYS 1 TO 2 AND ONE TABLET ON DAYS 3 TO 5
     Route: 048
     Dates: start: 20221230, end: 20230103
  3. VITAMIN C [Concomitant]
     Active Substance: ASCORBIC ACID
     Indication: Product used for unknown indication
     Dosage: SUPPLEMENT
  4. BACLOFEN [Concomitant]
     Active Substance: BACLOFEN
     Indication: Product used for unknown indication
  5. MAGNESIUM [Concomitant]
     Active Substance: MAGNESIUM
     Indication: Product used for unknown indication
     Dosage: SUPPLEMENT

REACTIONS (7)
  - Deafness unilateral [Recovered/Resolved]
  - Otitis externa [Not Recovered/Not Resolved]
  - Multiple sclerosis [Unknown]
  - Tinnitus [Recovered/Resolved]
  - Musculoskeletal disorder [Not Recovered/Not Resolved]
  - Decreased activity [Unknown]
  - Oedema peripheral [Recovering/Resolving]

NARRATIVE: CASE EVENT DATE: 20230101
